FAERS Safety Report 6056122-5 (Version None)
Quarter: 2009Q1

REPORT INFORMATION
  Report Type: 
  Country: None (occurrence: None)
  Receive Date: 20090129
  Receipt Date: 20090127
  Transmission Date: 20090719
  Serious: Yes (Disabling)
  Sender: FDA-Public Use
  Company Number: FR-SP-2009-00284

PATIENT
  Age: 63 Year
  Sex: Female

DRUGS (1)
  1. IMMUCYST [Suspect]
     Indication: CARCINOMA IN SITU OF BLADDER
     Route: 065

REACTIONS (2)
  - HEPATITIS [None]
  - HYPERTHERMIA [None]
